FAERS Safety Report 4800756-X (Version None)
Quarter: 2005Q4

REPORT INFORMATION
  Report Type: 
  Country: None (occurrence: None)
  Receive Date: 20051013
  Receipt Date: 20050927
  Transmission Date: 20060501
  Serious: Yes (Other)
  Sender: FDA-Public Use
  Company Number: 2005PL000069

PATIENT
  Age: 52 Year
  Sex: Male

DRUGS (3)
  1. AZATHIOPRINE [Suspect]
     Indication: COLITIS ULCERATIVE
     Dosage: PO
     Route: 048
  2. PREDNISONE [Suspect]
     Indication: COLITIS ULCERATIVE
     Dosage: PO
     Route: 048
  3. CYCLOSPORINE [Suspect]
     Indication: COLITIS ULCERATIVE
     Dosage: PO
     Route: 048

REACTIONS (6)
  - B-CELL LYMPHOMA [None]
  - COLITIS [None]
  - EPSTEIN-BARR VIRUS INFECTION [None]
  - LARGE INTESTINE PERFORATION [None]
  - NON-HODGKIN'S LYMPHOMA [None]
  - PERITONITIS [None]
